FAERS Safety Report 7931611-4 (Version None)
Quarter: 2011Q4

REPORT INFORMATION
  Report Type: 
  Country: None (occurrence: None)
  Receive Date: 20111121
  Receipt Date: 20111111
  Transmission Date: 20120403
  Serious: Yes (Life-Threatening, Hospitalization, Other)
  Sender: FDA-Public Use
  Company Number: JP-AMGEN-JPNSP2011057188

PATIENT
  Age: 60 Year
  Sex: Male

DRUGS (2)
  1. PREDNISOLONE [Concomitant]
     Dosage: UNK
     Route: 048
  2. ENBREL [Suspect]
     Indication: RHEUMATOID ARTHRITIS
     Dosage: 50 MG/WEEK
     Route: 058
     Dates: start: 20110401, end: 20111001

REACTIONS (5)
  - ALTERED STATE OF CONSCIOUSNESS [None]
  - RASH [None]
  - PANCYTOPENIA [None]
  - OEDEMA [None]
  - DRUG HYPERSENSITIVITY [None]
